FAERS Safety Report 24238573 (Version 1)
Quarter: 2024Q3

REPORT INFORMATION
  Report Type: Spontaneous
  Country: US (occurrence: None)
  Receive Date: 20240821
  Receipt Date: 20240821
  Transmission Date: 20241016
  Serious: Yes (Hospitalization)
  Sender: Public
  Company Number: None

PATIENT
  Age: 40 Year
  Sex: Female
  Weight: 109.35 kg

DRUGS (6)
  1. ZEPBOUND [Suspect]
     Active Substance: TIRZEPATIDE
     Indication: Weight decreased
     Dosage: OTHER QUANTITY : 1 INJECTION(S);?OTHER FREQUENCY : ONCE A WEEK;?OTHER ROUTE : INJECTED INTO STOMACH;
     Route: 050
     Dates: start: 20240108, end: 20240116
  2. ALPRAZOLAN [Concomitant]
  3. vitamin d [Concomitant]
  4. ZINC [Concomitant]
     Active Substance: ZINC
  5. multivitamin [Concomitant]
  6. PROBIOTICS NOS [Concomitant]
     Active Substance: PROBIOTICS NOS

REACTIONS (2)
  - Atrioventricular block complete [None]
  - Insomnia [None]

NARRATIVE: CASE EVENT DATE: 20240116
